FAERS Safety Report 8269807-7 (Version None)
Quarter: 2012Q2

REPORT INFORMATION
  Report Type: 
  Country: None (occurrence: None)
  Receive Date: 20120405
  Receipt Date: 20120321
  Transmission Date: 20120825
  Serious: Yes (Hospitalization)
  Sender: FDA-Public Use
  Company Number: 2011SGN00359

PATIENT
  Age: 47 Year
  Sex: Male
  Weight: 74.4 kg

DRUGS (2)
  1. BACTRIM [Concomitant]
  2. BRENTUXIMAB VEDOTIN/PLACEBO(BRENTUXIMAB VEDOTIN/PLACEBO) INJECTION [Suspect]
     Indication: HODGKIN'S DISEASE
     Dosage: 1.8 MG/KG, SINGLE, INTRAVENOUS
     Route: 042
     Dates: start: 20111201, end: 20111201

REACTIONS (1)
  - MYOCARDIAL INFARCTION [None]
